FAERS Safety Report 9890041 (Version 1)
Quarter: 2014Q1

REPORT INFORMATION
  Report Type: Spontaneous
  Country: US (occurrence: US)
  Receive Date: 20140212
  Receipt Date: 20140212
  Transmission Date: 20141002
  Serious: No
  Sender: FDA-Public Use
  Company Number: US-BIOGENIDEC-2014BI010987

PATIENT
  Age: 31 Year
  Sex: Female

DRUGS (7)
  1. TECFIDERA [Suspect]
     Indication: MULTIPLE SCLEROSIS
     Route: 048
     Dates: start: 201312
  2. TECFIDERA [Suspect]
     Indication: MULTIPLE SCLEROSIS
     Route: 048
     Dates: start: 201312
  3. VITAMIN D [Concomitant]
  4. CO Q-10 [Concomitant]
  5. B-12 TABLET [Concomitant]
  6. ONE DAILY MULTIVITAMIN TAB [Concomitant]
  7. NORETHIN-ETHINYL ESTRAD CH TB [Concomitant]

REACTIONS (1)
  - Influenza [Unknown]
